FAERS Safety Report 4919024-0 (Version None)
Quarter: 2006Q1

REPORT INFORMATION
  Report Type: 
  Country: None (occurrence: None)
  Receive Date: 20060215
  Receipt Date: 20060210
  Transmission Date: 20060701
  Serious: Yes (Death, Hospitalization)
  Sender: FDA-Public Use
  Company Number: 200610289GDS

PATIENT
  Age: 68 Year
  Sex: Female

DRUGS (2)
  1. CIPRO [Suspect]
     Indication: URINARY TRACT INFECTION
     Dosage: 500 MG, TOTAL DAILY, ORAL
     Route: 048
     Dates: start: 20060111, end: 20060117
  2. DILANTIN [Concomitant]

REACTIONS (6)
  - CATHETER RELATED COMPLICATION [None]
  - COMA [None]
  - GASTROINTESTINAL PAIN [None]
  - MOUTH ULCERATION [None]
  - PHARYNGOLARYNGEAL PAIN [None]
  - STEVENS-JOHNSON SYNDROME [None]
